FAERS Safety Report 5549804-2 (Version None)
Quarter: 2007Q4

REPORT INFORMATION
  Report Type: 
  Country: None (occurrence: None)
  Receive Date: 20071210
  Receipt Date: 20071129
  Transmission Date: 20080405
  Serious: Yes (Death)
  Sender: FDA-Public Use
  Company Number: 2007-03796

PATIENT
  Age: 79 Year
  Sex: Male
  Weight: 72.7 kg

DRUGS (12)
  1. VELCADE [Suspect]
     Indication: MULTIPLE MYELOMA
     Dosage: 2.30 MG, IV BOLUS
     Route: 040
     Dates: start: 20061025, end: 20061025
  2. ENABLEX [Concomitant]
  3. FLAGYL [Concomitant]
  4. FOLIC ACID [Concomitant]
  5. HUMALOG [Concomitant]
  6. LEXAPRO [Concomitant]
  7. LIPITOR [Concomitant]
  8. OMEPRAZOLE [Concomitant]
  9. TRAVATAN [Concomitant]
  10. ARANESP [Concomitant]
  11. KYTRIL [Concomitant]
  12. DEXTROMETHORPHAN HYDROBROMIDE [Concomitant]

REACTIONS (2)
  - BLOOD GLUCOSE ABNORMAL [None]
  - DISEASE PROGRESSION [None]
